FAERS Safety Report 20652493 (Version 3)
Quarter: 2022Q2

REPORT INFORMATION
  Report Type: Spontaneous
  Country: US (occurrence: US)
  Receive Date: 20220330
  Receipt Date: 20220526
  Transmission Date: 20220721
  Serious: No
  Sender: FDA-Public Use
  Company Number: US-BRISTOL-MYERS SQUIBB COMPANY-2022-011640

PATIENT
  Age: 73 Year
  Sex: Male

DRUGS (3)
  1. ORENCIA [Suspect]
     Active Substance: ABATACEPT
     Indication: Rheumatoid arthritis
     Dosage: ONGOING?EXPIRY DATE FOR BATCH NUMBER ACA7393 IS 31-AUG-2023
     Route: 058
     Dates: start: 20220113
  2. ORENCIA [Suspect]
     Active Substance: ABATACEPT
     Indication: Intervertebral disc degeneration
  3. ORENCIA [Suspect]
     Active Substance: ABATACEPT
     Indication: Rheumatoid arthritis
     Dosage: X1 LOADING DOSE
     Route: 042
     Dates: start: 20220113

REACTIONS (3)
  - Joint swelling [Unknown]
  - Arthralgia [Unknown]
  - Drug ineffective [Unknown]

NARRATIVE: CASE EVENT DATE: 20220201
